FAERS Safety Report 6049552-9 (Version None)
Quarter: 2009Q1

REPORT INFORMATION
  Report Type: 
  Country: None (occurrence: None)
  Receive Date: 20090121
  Receipt Date: 20090115
  Transmission Date: 20090719
  Serious: Yes (Life-Threatening, Hospitalization)
  Sender: FDA-Public Use
  Company Number: 200809AGG00826

PATIENT
  Age: 49 Year
  Sex: Male

DRUGS (3)
  1. TIROFIBAN HYDROCHLORIDE (TIROFIBAN  HCL) (0.35 MG, 8.4 MG) [Suspect]
     Indication: CORONARY ARTERIAL STENT INSERTION
     Dosage: 0.35 MG QD, INTRAVENOUS (NOT OTHERWISE SPECIFIED, 8.4 MG TOTAL INTRAVENOUS (NOT OTHERWISE SPECIFIED)
     Route: 042
     Dates: start: 20080605, end: 20080610
  2. TIROFIBAN HYDROCHLORIDE (TIROFIBAN  HCL) (0.35 MG, 8.4 MG) [Suspect]
     Indication: CORONARY ARTERIAL STENT INSERTION
     Dosage: 0.35 MG QD, INTRAVENOUS (NOT OTHERWISE SPECIFIED, 8.4 MG TOTAL INTRAVENOUS (NOT OTHERWISE SPECIFIED)
     Route: 042
     Dates: start: 20080617, end: 20080617
  3. CLOPIDOGREL BISULFATE [Concomitant]

REACTIONS (23)
  - ANAPHYLACTIC SHOCK [None]
  - BACK PAIN [None]
  - BRONCHIAL CARCINOMA [None]
  - CARDIOMYOPATHY [None]
  - CHILLS [None]
  - CORONARY ARTERY DISEASE [None]
  - CORONARY ARTERY OCCLUSION [None]
  - DISSEMINATED INTRAVASCULAR COAGULATION [None]
  - DRUG ERUPTION [None]
  - DRUG HYPERSENSITIVITY [None]
  - EPISTAXIS [None]
  - GYNAECOMASTIA [None]
  - HAEMOPTYSIS [None]
  - HEPATIC CIRRHOSIS [None]
  - HEPATOCELLULAR INJURY [None]
  - HYPOTHYROIDISM [None]
  - LEUKOCYTOCLASTIC VASCULITIS [None]
  - LIVER INJURY [None]
  - PNEUMONIA [None]
  - PULMONARY HAEMORRHAGE [None]
  - RENAL PAIN [None]
  - STAPHYLOCOCCAL INFECTION [None]
  - THROMBOCYTOPENIA [None]
